FAERS Safety Report 6755453-0 (Version None)
Quarter: 2010Q2

REPORT INFORMATION
  Report Type: 
  Country: None (occurrence: None)
  Receive Date: 20100524
  Receipt Date: 20100226
  Transmission Date: 20101027
  Serious: No
  Sender: FDA-Public Use
  Company Number: 007926

PATIENT
  Sex: Female
  Weight: 69.4 kg

DRUGS (4)
  1. CIMZIA [Suspect]
     Indication: RHEUMATOID ARTHRITIS
     Dosage: (400 MG, MONTHLY SUBCUTANEOUS) ; (400 MG, Q 3 WEEKS SUBCUTANEOUS)
     Route: 058
     Dates: start: 20091001, end: 20100201
  2. CIMZIA [Suspect]
     Indication: RHEUMATOID ARTHRITIS
     Dosage: (400 MG, MONTHLY SUBCUTANEOUS) ; (400 MG, Q 3 WEEKS SUBCUTANEOUS)
     Route: 058
     Dates: start: 20100201
  3. COLESTID [Concomitant]
  4. ALBUTEROL [Concomitant]

REACTIONS (4)
  - ABDOMINAL PAIN [None]
  - INCORRECT DOSE ADMINISTERED [None]
  - MALAISE [None]
  - MEMORY IMPAIRMENT [None]
